FAERS Safety Report 6474276-3 (Version None)
Quarter: 2009Q4

REPORT INFORMATION
  Report Type: 
  Country: None (occurrence: None)
  Receive Date: 20091204
  Receipt Date: 20091130
  Transmission Date: 20100525
  Serious: Yes (Death, Life-Threatening, Other)
  Sender: FDA-Public Use
  Company Number: PHHY2009JP41840

PATIENT
  Age: 24 Year
  Sex: Female

DRUGS (14)
  1. SANDIMMUNE [Suspect]
     Indication: PROPHYLAXIS AGAINST GRAFT VERSUS HOST DISEASE
     Dosage: 130 MG DAILY
     Route: 042
     Dates: start: 20090119
  2. SANDIMMUNE [Suspect]
     Indication: STEM CELL TRANSPLANT
     Dosage: 1.2 MG/KG DAILY
  3. FLUDARA [Suspect]
     Indication: STEM CELL TRANSPLANT
     Dosage: 34 MG DAILY
     Route: 042
     Dates: start: 20090113, end: 20090117
  4. ALKERAN [Suspect]
     Indication: STEM CELL TRANSPLANT
     Dosage: 120 MG DAILY
     Route: 042
     Dates: start: 20090116, end: 20090117
  5. METHOTREXATE [Suspect]
     Indication: PROPHYLAXIS AGAINST GRAFT VERSUS HOST DISEASE
     Dosage: 13.5 MG
     Route: 042
     Dates: start: 20090121, end: 20090121
  6. METHOTREXATE [Suspect]
     Dosage: 9.5 MG
     Route: 042
     Dates: start: 20090123, end: 20090123
  7. METHOTREXATE [Suspect]
     Dosage: 9.5 MG
     Route: 042
     Dates: start: 20090126, end: 20090126
  8. FIRSTCIN [Suspect]
     Indication: ANTIBIOTIC PROPHYLAXIS
     Dosage: 2 G
     Route: 042
     Dates: start: 20090113, end: 20090126
  9. ZOSYN [Concomitant]
     Indication: ANTIBIOTIC PROPHYLAXIS
     Dosage: 13.5 G
     Route: 042
     Dates: start: 20090127, end: 20090203
  10. FUNGUARD [Concomitant]
     Indication: INFECTION PROPHYLAXIS
     Dosage: 100 MG DAILY
     Route: 042
     Dates: start: 20090120, end: 20090203
  11. CYCLOPHOSPHAMIDE [Concomitant]
  12. CYTARABINE [Concomitant]
  13. DEXAMETHASONE TAB [Concomitant]
  14. ETOPOSIDE [Concomitant]

REACTIONS (11)
  - ACUTE GRAFT VERSUS HOST DISEASE IN SKIN [None]
  - BLOOD PRODUCT TRANSFUSION DEPENDENT [None]
  - DISSEMINATED INTRAVASCULAR COAGULATION [None]
  - HAEMOLYTIC ANAEMIA [None]
  - MALIGNANT NEOPLASM PROGRESSION [None]
  - PATHOGEN RESISTANCE [None]
  - PETECHIAE [None]
  - PYREXIA [None]
  - SEPSIS [None]
  - STAPHYLOCOCCAL INFECTION [None]
  - THROMBOTIC MICROANGIOPATHY [None]
